FAERS Safety Report 12691021 (Version 1)
Quarter: 2016Q3

REPORT INFORMATION
  Report Type: Spontaneous
  Country: CH (occurrence: CH)
  Receive Date: 20160826
  Receipt Date: 20160826
  Transmission Date: 20161109
  Serious: Yes (Disabling)
  Sender: FDA-Public Use
  Company Number: CH-CELGENEUS-CHE-2016062170

PATIENT
  Age: 32 Year
  Sex: Male

DRUGS (2)
  1. OTEZLA [Suspect]
     Active Substance: APREMILAST
     Indication: PSORIASIS
     Route: 048
     Dates: start: 20160521, end: 20160608
  2. OTEZLA [Suspect]
     Active Substance: APREMILAST
     Dosage: 1X10MG?2X10MG?10MG AND 20MG?20MG AND 20MG
     Route: 048

REACTIONS (3)
  - Muscle spasms [Recovered/Resolved]
  - Vascular pain [Recovered/Resolved]
  - Pain in extremity [Recovered/Resolved]

NARRATIVE: CASE EVENT DATE: 20160607
